FAERS Safety Report 23347665 (Version 1)
Quarter: 2023Q4

REPORT INFORMATION
  Report Type: Spontaneous
  Country: US (occurrence: None)
  Receive Date: 20231228
  Receipt Date: 20231228
  Transmission Date: 20240110
  Serious: No
  Sender: FDA-Public Use
  Company Number: None

PATIENT
  Age: 2 Year
  Sex: Male
  Weight: 14.06 kg

DRUGS (1)
  1. DUPIXENT [Suspect]
     Active Substance: DUPILUMAB
     Indication: Dermatitis atopic
     Dosage: 1.4 ML EVERY 4 WEEKS SUBCUTANEOUS
     Route: 058
     Dates: start: 20230510

REACTIONS (1)
  - Erythema of eyelid [None]

NARRATIVE: CASE EVENT DATE: 20231228
